FAERS Safety Report 22305310 (Version 2)
Quarter: 2023Q2

REPORT INFORMATION
  Report Type: Spontaneous
  Country: US (occurrence: US)
  Receive Date: 20230510
  Receipt Date: 20230512
  Transmission Date: 20230721
  Serious: No
  Sender: FDA-Public Use
  Company Number: US-PFIZER INC-202300184899

PATIENT
  Sex: Female

DRUGS (1)
  1. ZITHROMAX [Suspect]
     Active Substance: AZITHROMYCIN DIHYDRATE
     Indication: Cough
     Dosage: UNK (TAKING 2 THE TWO DAYS, TAKING ONE TABLET THE FOLLOWING TWO DAYS)

REACTIONS (5)
  - Rash [Unknown]
  - Erythema [Unknown]
  - Hyperhidrosis [Unknown]
  - Hypersensitivity [Unknown]
  - Idiopathic environmental intolerance [Unknown]
